FAERS Safety Report 15427321 (Version 1)
Quarter: 2018Q3

REPORT INFORMATION
  Report Type: Spontaneous
  Country: US (occurrence: US)
  Receive Date: 20180925
  Receipt Date: 20180925
  Transmission Date: 20181010
  Serious: Yes (Other)
  Sender: FDA-Public Use
  Company Number: US-SA-2018SA262950

PATIENT
  Sex: Female

DRUGS (1)
  1. TOUJEO [Suspect]
     Active Substance: INSULIN GLARGINE
     Dosage: 25?30 UNITS NIGHTLY

REACTIONS (4)
  - Musculoskeletal pain [Unknown]
  - Fall [Unknown]
  - Limb injury [Unknown]
  - Product storage error [Unknown]
